FAERS Safety Report 12487613 (Version 3)
Quarter: 2017Q3

REPORT INFORMATION
  Report Type: Spontaneous
  Country: US (occurrence: US)
  Receive Date: 20160622
  Receipt Date: 20170823
  Transmission Date: 20171127
  Serious: Yes (Other)
  Sender: FDA-Public Use
  Company Number: US-TEVA-670280ACC

PATIENT
  Sex: Female

DRUGS (1)
  1. PARAGARD T 380A [Suspect]
     Active Substance: COPPER
     Dates: start: 20160211, end: 20160523

REACTIONS (8)
  - Device dislocation [Recovered/Resolved]
  - Premature labour [Unknown]
  - Device expulsion [Recovered/Resolved]
  - Pregnancy on contraceptive [Unknown]
  - Abortion spontaneous [Unknown]
  - Stillbirth [Unknown]
  - Maternal exposure during pregnancy [Unknown]
  - Vaginal haemorrhage [Unknown]
